FAERS Safety Report 9605332 (Version 2)
Quarter: 2013Q4

REPORT INFORMATION
  Report Type: Spontaneous
  Country: US (occurrence: US)
  Receive Date: 20131008
  Receipt Date: 20131008
  Transmission Date: 20140711
  Serious: Yes (Hospitalization, Other)
  Sender: FDA-Public Use
  Company Number: US-BAXTER-2013BAX036927

PATIENT
  Age: 66 Year
  Sex: Female

DRUGS (3)
  1. DIANEAL LOW CALCIUM (ULTRABAG) [Suspect]
     Indication: PERITONEAL DIALYSIS
     Route: 033
     Dates: start: 201211
  2. DIANEAL LOW CALCIUM (ULTRABAG) [Suspect]
     Indication: PERITONEAL DIALYSIS
     Route: 033
     Dates: start: 201211
  3. PHOSLO [Suspect]
     Indication: BLOOD PHOSPHORUS INCREASED
     Route: 048

REACTIONS (2)
  - Blood phosphorus increased [Not Recovered/Not Resolved]
  - Diarrhoea [Not Recovered/Not Resolved]
